FAERS Safety Report 15166098 (Version 2)
Quarter: 2019Q1

REPORT INFORMATION
  Report Type: Report from Study
  Country: DE (occurrence: DE)
  Receive Date: 20180719
  Receipt Date: 20190306
  Transmission Date: 20190417
  Serious: Yes (Hospitalization, Other)
  Sender: FDA-Public Use
  Company Number: DE-PFIZER INC-2018286387

PATIENT
  Sex: Female

DRUGS (16)
  1. CERTOLIZUMAB PEGOL [Suspect]
     Active Substance: CERTOLIZUMAB PEGOL
     Dosage: 200 MG, EVERY 2 WEEKS (QOW)
     Route: 058
     Dates: start: 201605, end: 201803
  2. LISINOPRIL. [Concomitant]
     Active Substance: LISINOPRIL
  3. METRONIDAZOLE. [Concomitant]
     Active Substance: METRONIDAZOLE
     Indication: REGURGITATION
     Dosage: UNK
  4. SITAGLIPTIN [Concomitant]
     Active Substance: SITAGLIPTIN
  5. METHOTREXATE SODIUM. [Suspect]
     Active Substance: METHOTREXATE SODIUM
     Dosage: 20 MG, UNK
  6. AMITRIPTYLINE HYDROCHLORIDE. [Concomitant]
     Active Substance: AMITRIPTYLINE HYDROCHLORIDE
  7. VALPROIC ACID. [Concomitant]
     Active Substance: VALPROIC ACID
  8. COLECALCIFEROL [Concomitant]
     Active Substance: CHOLECALCIFEROL
  9. METHOTREXATE SODIUM. [Suspect]
     Active Substance: METHOTREXATE SODIUM
     Dosage: 10 MG, UNK
     Dates: start: 201605
  10. OMEPRAZOLE. [Concomitant]
     Active Substance: OMEPRAZOLE
  11. TAVOR [Concomitant]
  12. FOLIC ACID. [Concomitant]
     Active Substance: FOLIC ACID
  13. PREDNISOLONE. [Concomitant]
     Active Substance: PREDNISOLONE
  14. METHOTREXATE SODIUM. [Suspect]
     Active Substance: METHOTREXATE SODIUM
     Dosage: 10 MG, WEEKLY (QW)
     Dates: end: 201604
  15. CERTOLIZUMAB PEGOL [Suspect]
     Active Substance: CERTOLIZUMAB PEGOL
     Indication: RHEUMATOID ARTHRITIS
     Dosage: 200 MG, EVERY 2 WEEKS (QOW)
     Route: 058
     Dates: start: 201503, end: 201604
  16. AMOXICILLIN TRIHYDRATE [Concomitant]
     Active Substance: AMOXICILLIN
     Indication: REGURGITATION
     Dosage: UNK
     Route: 048

REACTIONS (8)
  - Intraductal papillary mucinous neoplasm [Not Recovered/Not Resolved]
  - Helicobacter gastritis [Recovered/Resolved]
  - Nausea [Unknown]
  - Type 2 diabetes mellitus [Unknown]
  - Aversion [Unknown]
  - Generalised tonic-clonic seizure [Unknown]
  - Urinary tract infection [Unknown]
  - Acute kidney injury [Unknown]

NARRATIVE: CASE EVENT DATE: 20160414
